FAERS Safety Report 19135356 (Version 1)
Quarter: 2021Q2

REPORT INFORMATION
  Report Type: Other
  Country: TR (occurrence: TR)
  Receive Date: 20210414
  Receipt Date: 20210414
  Transmission Date: 20210717
  Serious: Yes (Hospitalization, Other)
  Sender: FDA-Public Use
  Company Number: TR-DEXPHARM-20210472

PATIENT
  Age: 42 Year
  Sex: Female

DRUGS (5)
  1. FERROUS SULFATE. [Interacting]
     Active Substance: FERROUS SULFATE
  2. ESOMEPRAZOLE. [Suspect]
     Active Substance: ESOMEPRAZOLE MAGNESIUM
  3. LEVOTHYROXINE. [Interacting]
     Active Substance: LEVOTHYROXINE
  4. LEVOTHYROXINE. [Interacting]
     Active Substance: LEVOTHYROXINE
  5. LEVOTHYROXINE. [Interacting]
     Active Substance: LEVOTHYROXINE

REACTIONS (2)
  - Hypothyroidism [Recovered/Resolved]
  - Drug interaction [Unknown]
